FAERS Safety Report 18559389 (Version 1)
Quarter: 2020Q4

REPORT INFORMATION
  Report Type: Spontaneous
  Country: US (occurrence: US)
  Receive Date: 20201126
  Receipt Date: 20201126
  Transmission Date: 20210114
  Serious: Yes (Hospitalization)
  Sender: FDA-Public Use
  Company Number: None

PATIENT
  Sex: Male
  Weight: 93.8 kg

DRUGS (1)
  1. CYTARABINE. [Suspect]
     Active Substance: CYTARABINE
     Dates: end: 20201115

REACTIONS (7)
  - Neutrophil count decreased [None]
  - Bladder pain [None]
  - Abdominal pain lower [None]
  - Bradycardia [None]
  - Discomfort [None]
  - Pyrexia [None]
  - Bladder disorder [None]

NARRATIVE: CASE EVENT DATE: 20201120
